FAERS Safety Report 5069072-8 (Version None)
Quarter: 2006Q3

REPORT INFORMATION
  Report Type: 
  Country: None (occurrence: None)
  Receive Date: 20060731
  Receipt Date: 20060719
  Transmission Date: 20061208
  Serious: Yes (Other)
  Sender: FDA-Public Use
  Company Number: 2006090067

PATIENT
  Sex: Female
  Weight: 81.6475 kg

DRUGS (2)
  1. GEODON [Suspect]
     Indication: BIPOLAR DISORDER
     Dosage: 160 MG (80 MG BID EVERY DAY)
     Dates: start: 20060601
  2. LITHIUM [Concomitant]

REACTIONS (12)
  - ABDOMINAL DISTENSION [None]
  - BALANCE DISORDER [None]
  - BEDRIDDEN [None]
  - DIZZINESS [None]
  - DYSSTASIA [None]
  - FLUID RETENTION [None]
  - HYPERHIDROSIS [None]
  - HYPOTHYROIDISM [None]
  - LETHARGY [None]
  - MUSCLE RIGIDITY [None]
  - PERFORMANCE STATUS DECREASED [None]
  - WEIGHT INCREASED [None]
